FAERS Safety Report 11146060 (Version 1)
Quarter: 2015Q2

REPORT INFORMATION
  Report Type: Spontaneous
  Country: US (occurrence: None)
  Receive Date: 20150527
  Receipt Date: 20150527
  Transmission Date: 20150821
  Serious: No
  Sender: FDA-Public Use
  Company Number: None

PATIENT
  Age: 62 Year
  Sex: Female
  Weight: 66.23 kg

DRUGS (2)
  1. ZIAC [Concomitant]
     Active Substance: BISOPROLOL FUMARATE\HYDROCHLOROTHIAZIDE
  2. CELECOXIB. [Suspect]
     Active Substance: CELECOXIB
     Indication: RHEUMATOID ARTHRITIS
     Dosage: 200 MG 2 CAPSULES TWICE DAILY BY MOUTH
     Route: 048
     Dates: start: 20150406, end: 20150409

REACTIONS (5)
  - Pain in extremity [None]
  - Product substitution issue [None]
  - Peripheral swelling [None]
  - Skin discolouration [None]
  - Skin lesion [None]

NARRATIVE: CASE EVENT DATE: 20150408
